FAERS Safety Report 15471599 (Version 2)
Quarter: 2019Q1

REPORT INFORMATION
  Report Type: Report from Study
  Country: US (occurrence: US)
  Receive Date: 20181007
  Receipt Date: 20190221
  Transmission Date: 20190417
  Serious: Yes (Other)
  Sender: FDA-Public Use
  Company Number: PHEH2018US041400

PATIENT
  Age: 70 Year
  Sex: Male

DRUGS (1)
  1. ENTRESTO [Suspect]
     Active Substance: SACUBITRIL\VALSARTAN
     Indication: CARDIAC FAILURE
     Dosage: UNK
     Route: 048
     Dates: start: 2017

REACTIONS (6)
  - Rib fracture [Unknown]
  - Road traffic accident [Unknown]
  - Pelvic fracture [Unknown]
  - Joint dislocation [Unknown]
  - Joint injury [Unknown]
  - Concussion [Unknown]

NARRATIVE: CASE EVENT DATE: 201807
